FAERS Safety Report 22589567 (Version 1)
Quarter: 2023Q2

REPORT INFORMATION
  Report Type: Spontaneous
  Country: IT (occurrence: IT)
  Receive Date: 20230612
  Receipt Date: 20230612
  Transmission Date: 20230721
  Serious: Yes (Other)
  Sender: FDA-Public Use
  Company Number: IT-ELI_LILLY_AND_COMPANY-IT202305012458

PATIENT
  Age: 40 Year

DRUGS (2)
  1. PEMETREXED [Suspect]
     Active Substance: PEMETREXED
     Indication: Epithelioid mesothelioma
     Dosage: UNK UNK, UNKNOWN
     Route: 065
  2. CARBOPLATIN [Concomitant]
     Active Substance: CARBOPLATIN
     Indication: Epithelioid mesothelioma
     Dosage: UNK
     Route: 065

REACTIONS (1)
  - Malignant neoplasm progression [Not Recovered/Not Resolved]
